FAERS Safety Report 16844058 (Version 1)
Quarter: 2019Q4

REPORT INFORMATION
  Report Type: Spontaneous
  Country: US (occurrence: US)
  Receive Date: 20190923
  Receipt Date: 20190923
  Transmission Date: 20200122
  Serious: Yes (Life-Threatening, Hospitalization, Other)
  Sender: FDA-Public Use
  Company Number: None

PATIENT
  Age: 16 Year
  Sex: Female
  Weight: 67.5 kg

DRUGS (2)
  1. WARFARIN [Concomitant]
     Active Substance: WARFARIN
  2. ABSORICA [Suspect]
     Active Substance: ISOTRETINOIN
     Indication: ACNE
     Dates: start: 20190103, end: 20190408

REACTIONS (7)
  - Depression [None]
  - Inflammatory bowel disease [None]
  - Autoimmune disorder [None]
  - Staphylococcal infection [None]
  - Thrombosis [None]
  - Clostridium difficile infection [None]
  - Pulmonary embolism [None]

NARRATIVE: CASE EVENT DATE: 20190406
